FAERS Safety Report 8729403 (Version 3)
Quarter: 2012Q4

REPORT INFORMATION
  Report Type: 
  Country: US (occurrence: US)
  Receive Date: 20120817
  Receipt Date: 20121228
  Transmission Date: 20130627
  Serious: Yes (Death, Other)
  Sender: FDA-Public Use
  Company Number: US-PFIZER INC-2012199540

PATIENT
  Age: 92 Year
  Sex: Female
  Weight: 40.82 kg

DRUGS (4)
  1. PROCARDIA XL [Suspect]
     Indication: BLOOD PRESSURE ABNORMAL
     Dosage: 90 mg, daily
  2. XALATAN [Suspect]
     Indication: GLAUCOMA
     Dosage: UNK, daily
  3. XALATAN [Suspect]
     Indication: MACULAR DEGENERATION
  4. LEVOTHYROXINE [Concomitant]
     Indication: THYROID DISORDER
     Dosage: 25 ug, daily

REACTIONS (2)
  - Death [Fatal]
  - Blindness [Unknown]
